FAERS Safety Report 4658813-7 (Version None)
Quarter: 2005Q2

REPORT INFORMATION
  Report Type: 
  Country: None (occurrence: None)
  Receive Date: 20050511
  Receipt Date: 20050427
  Transmission Date: 20051028
  Serious: Yes (Hospitalization)
  Sender: FDA-Public Use
  Company Number: US-GLAXOSMITHKLINE-A0555916A

PATIENT
  Age: 64 Year
  Sex: Female
  Weight: 94 kg

DRUGS (21)
  1. CITRUCEL SUGAR-FREE SUSPENSION ORANGE [Suspect]
     Indication: GASTROINTESTINAL DISORDER
     Route: 048
     Dates: start: 19890101, end: 20050401
  2. NEXIUM [Concomitant]
  3. PREVACID [Concomitant]
  4. NORVASC [Concomitant]
  5. HALCION [Concomitant]
  6. NITROGLYCERIN [Concomitant]
     Indication: OESOPHAGEAL SPASM
     Dosage: .4MG AS REQUIRED
  7. ASPIRIN [Concomitant]
  8. CELEBREX [Concomitant]
  9. MULTI-VITAMIN [Concomitant]
  10. VITAMIN C [Concomitant]
     Dosage: 500MG TWICE PER DAY
  11. CALCIUM CITRATE [Concomitant]
  12. CALCIUM + D [Concomitant]
  13. CO Q10 [Concomitant]
  14. PROTEINEX [Concomitant]
  15. ANTIHYPERTENSIVE (UNSPECIFIED) [Concomitant]
  16. NORPRAMINE [Concomitant]
     Indication: DEPRESSION
  17. ANTIDEPRESSANT (UNSPECIFIED) [Concomitant]
     Indication: DEPRESSION
  18. ESGIC [Concomitant]
     Indication: HEADACHE
  19. LOHIST [Concomitant]
  20. ESTRACE [Concomitant]
  21. TRANXENE [Concomitant]
     Dosage: 7.5MG THREE TIMES PER DAY

REACTIONS (5)
  - ABNORMAL FAECES [None]
  - BACK PAIN [None]
  - FAECES HARD [None]
  - POOR QUALITY DRUG ADMINISTERED [None]
  - SPINAL COLUMN STENOSIS [None]
